FAERS Safety Report 8133669-9 (Version None)
Quarter: 2012Q1

REPORT INFORMATION
  Report Type: 
  Country: None (occurrence: None)
  Receive Date: 20120213
  Receipt Date: 20120210
  Transmission Date: 20120608
  Serious: Yes (Other)
  Sender: FDA-Public Use
  Company Number: CA-AMGEN-CANSP2011027845

PATIENT
  Age: 63 Year
  Sex: Female
  Weight: 118.82 kg

DRUGS (3)
  1. CALCIUM [Concomitant]
     Dosage: UNK
  2. ENBREL [Suspect]
     Indication: RHEUMATOID ARTHRITIS
     Dosage: 50 MG, QWK
     Route: 058
     Dates: start: 20091118, end: 20110829
  3. LUVOX [Concomitant]
     Dosage: UNK

REACTIONS (7)
  - PULMONARY OEDEMA [None]
  - HEADACHE [None]
  - OEDEMA PERIPHERAL [None]
  - INJECTION SITE PAIN [None]
  - HYPOAESTHESIA [None]
  - NASOPHARYNGITIS [None]
  - ARRHYTHMIA [None]
